FAERS Safety Report 8873218 (Version 2)
Quarter: 2013Q4

REPORT INFORMATION
  Report Type: Spontaneous
  Country: GB (occurrence: GB)
  Receive Date: 20121029
  Receipt Date: 20131011
  Transmission Date: 20140711
  Serious: Yes (Death, Congenital Anomaly, Other)
  Sender: FDA-Public Use
  Company Number: GB-MYLANLABS-2012S1021553

PATIENT
  Sex: 0

DRUGS (2)
  1. ZOLPIDEM [Suspect]
     Route: 064
     Dates: end: 20120519
  2. TYSABRI [Suspect]
     Route: 064
     Dates: start: 201003, end: 20120511

REACTIONS (5)
  - Exposure during pregnancy [Unknown]
  - Ureteric dilatation [Unknown]
  - Urinary tract obstruction [Unknown]
  - Congenital cystic kidney disease [Fatal]
  - Premature baby [Unknown]
